FAERS Safety Report 8303075-2 (Version None)
Quarter: 2012Q2

REPORT INFORMATION
  Report Type: 
  Country: None (occurrence: None)
  Receive Date: 20120422
  Receipt Date: 20120411
  Transmission Date: 20120825
  Serious: Yes (Other)
  Sender: FDA-Public Use
  Company Number: FR-BRISTOL-MYERS SQUIBB COMPANY-16417305

PATIENT
  Age: 29 Year
  Sex: Male
  Weight: 57 kg

DRUGS (1)
  1. ABILIFY [Suspect]
     Indication: BIPOLAR DISORDER
     Dosage: INTERRUPTED AND REINTRODUCED WITH 20MG
     Route: 048
     Dates: end: 20120401

REACTIONS (1)
  - ERECTILE DYSFUNCTION [None]
